FAERS Safety Report 16184488 (Version 1)
Quarter: 2019Q2

REPORT INFORMATION
  Report Type: Spontaneous
  Country: CA (occurrence: CA)
  Receive Date: 20190411
  Receipt Date: 20190411
  Transmission Date: 20190711
  Serious: Yes (Other)
  Sender: FDA-Public Use
  Company Number: CA-PFIZER INC-2019149276

PATIENT
  Age: 48 Year
  Sex: Male

DRUGS (12)
  1. DIAZEPAM. [Concomitant]
     Active Substance: DIAZEPAM
     Dosage: 10 MG, 1X/DAY HS (AT BEDTIME)
  2. ACETYLSALICYLIC ACID [Concomitant]
     Active Substance: ASPIRIN
     Dosage: UNK UNK, 1X/DAY
  3. BISOPROLOL [Concomitant]
     Active Substance: BISOPROLOL
     Dosage: 10 MG, 1X/DAY
  4. FOLIC ACID. [Concomitant]
     Active Substance: FOLIC ACID
     Dosage: 15 MG, WEEKLY
  5. DICLOFENAC [Concomitant]
     Active Substance: DICLOFENAC
     Dosage: 50 MG, 2X/DAY
  6. HUMIRA [Concomitant]
     Active Substance: ADALIMUMAB
     Dosage: UNK
     Dates: end: 2018
  7. METHOTREXATE. [Concomitant]
     Active Substance: METHOTREXATE
     Dosage: 15 MG, WEEKLY
  8. TYLENOL [Concomitant]
     Active Substance: ACETAMINOPHEN
     Dosage: UNK UNK, 4X/DAY
  9. CITALOPRAM [Concomitant]
     Active Substance: CITALOPRAM HYDROBROMIDE
     Dosage: 20 MG, 1X/DAY
  10. ATORVASTATIN CALCIUM. [Suspect]
     Active Substance: ATORVASTATIN CALCIUM
     Dosage: 40 MG, 1X/DAY
  11. CENTRUM PERFORMANCE [ASCORBIC ACID;BETACAROTENE;BIOTIN;CALCIUM;CHROMIU [Concomitant]
     Dosage: UNK UNK, 1X/DAY
  12. OMEGA 3 FISH OIL [FISH OIL] [Concomitant]
     Dosage: UNK UNK, 1X/DAY

REACTIONS (4)
  - Mycobacterium tuberculosis complex test positive [Recovered/Resolved]
  - Cardiac disorder [Unknown]
  - Uveitis [Unknown]
  - Depression [Unknown]

NARRATIVE: CASE EVENT DATE: 2019
